FAERS Safety Report 5075247-4 (Version None)
Quarter: 2006Q3

REPORT INFORMATION
  Report Type: 
  Country: None (occurrence: None)
  Receive Date: 20060809
  Receipt Date: 20060615
  Transmission Date: 20061208
  Serious: Yes (Death)
  Sender: FDA-Public Use
  Company Number: ES-BRISTOL-MYERS SQUIBB COMPANY-13414172

PATIENT
  Age: 35 Year
  Sex: Female
  Weight: 90 kg

DRUGS (2)
  1. ARIPIPRAZOLE [Suspect]
     Indication: SCHIZOPHRENIA
     Route: 048
     Dates: start: 20031201, end: 20060501
  2. CLOPIXOL [Suspect]
     Dates: start: 20050510, end: 20060501

REACTIONS (4)
  - ABNORMAL BEHAVIOUR [None]
  - COMPLETED SUICIDE [None]
  - DEPRESSION [None]
  - PSYCHOTIC DISORDER [None]
